FAERS Safety Report 7819310-0 (Version None)
Quarter: 2011Q4

REPORT INFORMATION
  Report Type: 
  Country: None (occurrence: None)
  Receive Date: 20111018
  Receipt Date: 20110209
  Transmission Date: 20120403
  Serious: No
  Sender: FDA-Public Use
  Company Number: US-ASTRAZENECA-2011SE01453

PATIENT
  Age: 19 Year
  Sex: Female

DRUGS (3)
  1. ZOPINEX [Concomitant]
  2. SYMBICORT [Suspect]
     Indication: ASTHMA
     Dosage: 160 MCG BID
     Route: 055
  3. SINGULAIR [Concomitant]

REACTIONS (3)
  - DYSPNOEA [None]
  - DRUG DOSE OMISSION [None]
  - LIP DISCOLOURATION [None]
